FAERS Safety Report 10877980 (Version 1)
Quarter: 2015Q1

REPORT INFORMATION
  Report Type: Spontaneous
  Country: US (occurrence: None)
  Receive Date: 20150224
  Receipt Date: 20150224
  Transmission Date: 20150721
  Serious: No
  Sender: FDA-Public Use
  Company Number: None

PATIENT
  Sex: Female
  Weight: 54.43 kg

DRUGS (15)
  1. PAVIX [Concomitant]
  2. FISH OIL [Concomitant]
     Active Substance: FISH OIL
  3. OMEG 3 [Concomitant]
  4. VITAMIN C [Concomitant]
     Active Substance: ASCORBIC ACID
  5. AMLODIPINE [Suspect]
     Active Substance: AMLODIPINE BESYLATE
     Indication: HYPERTENSION
     Dosage: 5 MG 1 PILL 1 DAILY BY MOUTH
     Route: 048
     Dates: end: 20150120
  6. SYNTHROID [Concomitant]
     Active Substance: LEVOTHYROXINE SODIUM
  7. METOPROLO-ER [Concomitant]
  8. ZETIA [Concomitant]
     Active Substance: EZETIMIBE
  9. CENTRUM SILVER [Concomitant]
     Active Substance: VITAMINS
  10. VIT. E [Concomitant]
  11. CALCIUM PLUS D [Concomitant]
     Active Substance: CALCIUM\VITAMIN D
  12. VIT. B COMPLEX [Concomitant]
  13. PANTOPRAZOL-DR [Concomitant]
  14. LOSARTAN-HCT [Concomitant]
  15. GARLIC. [Concomitant]
     Active Substance: GARLIC

REACTIONS (5)
  - Stomatitis [None]
  - Oral pain [None]
  - Tenderness [None]
  - Oral disorder [None]
  - Feeling abnormal [None]
